FAERS Safety Report 16483898 (Version 2)
Quarter: 2019Q3

REPORT INFORMATION
  Report Type: Report from Study
  Country: PL (occurrence: PL)
  Receive Date: 20190627
  Receipt Date: 20190801
  Transmission Date: 20191004
  Serious: Yes (Death)
  Sender: FDA-Public Use
  Company Number: PL-REGENERON PHARMACEUTICALS, INC.-2019-37176

PATIENT

DRUGS (3)
  1. ASA [Concomitant]
     Active Substance: ASPIRIN
     Indication: PRODUCT USED FOR UNKNOWN INDICATION
     Dosage: 75 MG
  2. EYLEA [Suspect]
     Active Substance: AFLIBERCEPT
     Indication: NEOVASCULAR AGE-RELATED MACULAR DEGENERATION
     Dosage: 2 MG, TOTAL EYLEA DOSES RECEIVED: 8 INJECTIONS, LAST INJECTION ON 08-MAR-2019
     Dates: start: 20180219, end: 20190308
  3. ACARD [Concomitant]
     Active Substance: ASPIRIN
     Indication: PRODUCT USED FOR UNKNOWN INDICATION
     Dosage: FOR A FEW YEARS

REACTIONS (1)
  - Death [Fatal]

NARRATIVE: CASE EVENT DATE: 20190605
